FAERS Safety Report 13347694 (Version 3)
Quarter: 2017Q2

REPORT INFORMATION
  Report Type: Report from Study
  Country: TW (occurrence: TW)
  Receive Date: 20170317
  Receipt Date: 20170605
  Transmission Date: 20170830
  Serious: Yes (Other)
  Sender: FDA-Public Use
  Company Number: TW-ELI_LILLY_AND_COMPANY-TW201703007227

PATIENT
  Age: 60 Year
  Sex: Male
  Weight: 68 kg

DRUGS (8)
  1. 5 FU [Concomitant]
     Active Substance: FLUOROURACIL
     Indication: LIP AND/OR ORAL CAVITY CANCER
     Dosage: 2000 MG, UNKNOWN
     Route: 065
  2. M.T.X [Suspect]
     Active Substance: METHOTREXATE
     Indication: LIP AND/OR ORAL CAVITY CANCER
     Dosage: 50 MG, WEEKLY (1/W)
     Route: 065
     Dates: start: 20170302
  3. BLEOCIN                            /00183901/ [Concomitant]
     Active Substance: BLEOMYCIN SULFATE
     Indication: LIP AND/OR ORAL CAVITY CANCER
     Dosage: 20 MG, UNKNOWN
     Route: 065
  4. MITOMYCIN C [Concomitant]
     Active Substance: MITOMYCIN
     Indication: LIP AND/OR ORAL CAVITY CANCER
     Dosage: 8 MG, UNKNOWN
     Route: 065
  5. VINCRISTINE [Concomitant]
     Active Substance: VINCRISTINE
     Indication: LIP AND/OR ORAL CAVITY CANCER
     Dosage: 2 MG, UNKNOWN
     Route: 065
  6. CETUXIMAB. [Suspect]
     Active Substance: CETUXIMAB
     Indication: LIP AND/OR ORAL CAVITY CANCER
     Dosage: 250 MG/M2, WEEKLY (1/W)
     Route: 042
     Dates: start: 20170209, end: 20170302
  7. CISPLATIN. [Concomitant]
     Active Substance: CISPLATIN
     Indication: LIP AND/OR ORAL CAVITY CANCER
     Dosage: 20 MG, UNKNOWN
     Route: 065
  8. EPIRUBICIN [Suspect]
     Active Substance: EPIRUBICIN
     Indication: LIP AND/OR ORAL CAVITY CANCER
     Dosage: 0.05 G, WEEKLY (1/W)
     Route: 065
     Dates: start: 20170302

REACTIONS (4)
  - Off label use [Unknown]
  - Fatigue [Unknown]
  - Dyspepsia [Unknown]
  - White blood cell count decreased [Recovered/Resolved]

NARRATIVE: CASE EVENT DATE: 20170302
